FAERS Safety Report 25891414 (Version 1)
Quarter: 2025Q4

REPORT INFORMATION
  Report Type: Spontaneous
  Country: US (occurrence: US)
  Receive Date: 20251007
  Receipt Date: 20251007
  Transmission Date: 20260118
  Serious: Yes (Other)
  Sender: ELI LILLY AND COMPANY
  Company Number: US-ELI_LILLY_AND_COMPANY-US202509026348

PATIENT
  Age: 58 Year
  Sex: Female

DRUGS (6)
  1. MOUNJARO [Suspect]
     Active Substance: TIRZEPATIDE
     Indication: Product used for unknown indication
     Dosage: UNK UNK, UNKNOWN
     Route: 065
  2. RECORLEV [Suspect]
     Active Substance: LEVOKETOCONAZOLE
     Indication: Pituitary-dependent Cushing^s syndrome
     Dosage: 150 MG, BID
     Route: 048
     Dates: start: 20231115
  3. RECORLEV [Suspect]
     Active Substance: LEVOKETOCONAZOLE
     Dosage: 300 MG, BID
     Route: 048
     Dates: start: 20240212, end: 20240302
  4. RECORLEV [Suspect]
     Active Substance: LEVOKETOCONAZOLE
     Dosage: 300 UNK
     Route: 058
     Dates: start: 20240303, end: 202408
  5. RECORLEV [Suspect]
     Active Substance: LEVOKETOCONAZOLE
     Dosage: 300 MG, BID
     Route: 048
  6. OLMESARTAN [Concomitant]
     Active Substance: OLMESARTAN
     Indication: Product used for unknown indication

REACTIONS (10)
  - Headache [Unknown]
  - Pain [Unknown]
  - Blood pressure decreased [Unknown]
  - Salivary gland mass [Unknown]
  - Somnolence [Unknown]
  - Vitamin D decreased [Unknown]
  - Thyroid function test abnormal [Unknown]
  - Hypothalamo-pituitary disorder [Unknown]
  - Fatigue [Not Recovered/Not Resolved]
  - Drug effect less than expected [Unknown]

NARRATIVE: CASE EVENT DATE: 20230101
